FAERS Safety Report 19764968 (Version 1)
Quarter: 2021Q3

REPORT INFORMATION
  Report Type: Spontaneous
  Country: US (occurrence: US)
  Receive Date: 20210831
  Receipt Date: 20210831
  Transmission Date: 20211014
  Serious: No
  Sender: FDA-Public Use
  Company Number: US-AUROBINDO-AUR-APL-2021-003995

PATIENT
  Age: 19 Year
  Sex: Male
  Weight: 44 kg

DRUGS (1)
  1. ROPIVACAINE HYDROCHLORIDE INJECTION USP 0.5 % [Suspect]
     Active Substance: ROPIVACAINE HYDROCHLORIDE
     Indication: NERVE BLOCK
     Dosage: 30 MILLILITER
     Route: 065

REACTIONS (1)
  - Drug ineffective [Unknown]
